FAERS Safety Report 11923021 (Version 1)
Quarter: 2016Q1

REPORT INFORMATION
  Report Type: Report from Study
  Country: US (occurrence: US)
  Receive Date: 20160117
  Receipt Date: 20160117
  Transmission Date: 20160526
  Serious: Yes (Other)
  Sender: FDA-Public Use
  Company Number: US-AMGEN-USASL2016005049

PATIENT
  Age: 79 Year
  Sex: Female

DRUGS (1)
  1. REPATHA [Suspect]
     Active Substance: EVOLOCUMAB
     Indication: PRODUCT USED FOR UNKNOWN INDICATION
     Dosage: UNK UNK, UNK
     Route: 065
     Dates: start: 20151130, end: 20151227

REACTIONS (9)
  - Pain [Recovered/Resolved]
  - Cystitis [Unknown]
  - Malaise [Unknown]
  - Amnesia [Recovering/Resolving]
  - Arthralgia [Unknown]
  - Fibromyalgia [Unknown]
  - Influenza like illness [Unknown]
  - Rhinorrhoea [Unknown]
  - Pyrexia [Unknown]
